FAERS Safety Report 7191955-3 (Version None)
Quarter: 2010Q4

REPORT INFORMATION
  Report Type: 
  Country: None (occurrence: None)
  Receive Date: 20101223
  Receipt Date: 20101215
  Transmission Date: 20110411
  Serious: Yes (Other)
  Sender: FDA-Public Use
  Company Number: PHHY2010JP61410

PATIENT
  Sex: Male

DRUGS (10)
  1. SIMULECT [Suspect]
     Indication: RENAL TRANSPLANT
     Dosage: 20 MG, UNK
     Route: 042
     Dates: start: 20061025, end: 20061025
  2. SIMULECT [Suspect]
     Dosage: 20 MG, UNK
     Route: 042
     Dates: start: 20061029, end: 20061029
  3. NEORAL [Suspect]
     Indication: RENAL TRANSPLANT
     Dosage: UNK
     Route: 048
     Dates: start: 20061011
  4. SANDIMMUNE [Concomitant]
     Indication: RENAL TRANSPLANT
     Dosage: 180 MG, UNK
     Route: 042
     Dates: start: 20061025, end: 20061027
  5. SOLU-MEDROL [Concomitant]
     Indication: RENAL TRANSPLANT
     Dosage: UNK
     Route: 042
     Dates: start: 20061025, end: 20061104
  6. CELLCEPT [Concomitant]
     Indication: RENAL TRANSPLANT
     Dosage: 4000 MG, UNK
     Route: 048
     Dates: start: 20061011
  7. MEDROL [Concomitant]
     Indication: RENAL TRANSPLANT
     Dosage: 20 MG, UNK
     Route: 048
     Dates: start: 20061105, end: 20070125
  8. WARFARIN SODIUM [Concomitant]
     Indication: ATRIAL FIBRILLATION
     Dosage: 2 MG, UNK
     Route: 048
  9. LANIRAPID [Concomitant]
     Indication: ATRIAL FIBRILLATION
     Dosage: 0.1 MG, UNK
     Route: 048
  10. THYRADIN [Concomitant]
     Indication: HYPOTHYROIDISM
     Dosage: 100 UG, UNK
     Route: 048

REACTIONS (4)
  - BLOOD CREATININE INCREASED [None]
  - BLOOD PRESSURE DECREASED [None]
  - BLOOD UREA INCREASED [None]
  - KIDNEY TRANSPLANT REJECTION [None]
